FAERS Safety Report 10669996 (Version 3)
Quarter: 2015Q1

REPORT INFORMATION
  Report Type: Spontaneous
  Country: JP (occurrence: JP)
  Receive Date: 20141223
  Receipt Date: 20150126
  Transmission Date: 20150720
  Serious: Yes (Death, Hospitalization)
  Sender: FDA-Public Use
  Company Number: JP-ROCHE-1511444

PATIENT
  Age: 60 Year
  Weight: 64 kg

DRUGS (14)
  1. OLMETEC [Concomitant]
     Active Substance: OLMESARTAN MEDOXOMIL
     Route: 065
     Dates: start: 20140114, end: 20140317
  2. LUCENTIS [Suspect]
     Active Substance: RANIBIZUMAB
     Indication: DIABETIC RETINAL OEDEMA
     Dosage: (2.3MG/0.23ML ) IN BOTH EYES
     Route: 050
     Dates: start: 20140701
  3. SEIBULE [Concomitant]
     Active Substance: MIGLITOL
     Route: 065
     Dates: start: 20121002
  4. CARDENALIN [Concomitant]
     Active Substance: DOXAZOSIN MESYLATE
     Route: 065
     Dates: start: 20140318
  5. RINDERON A [Concomitant]
     Active Substance: BETAMETHASONE SODIUM PHOSPHATE\NEOMYCIN SULFATE
     Route: 065
     Dates: start: 20130117
  6. JANUVIA [Concomitant]
     Active Substance: SITAGLIPTIN PHOSPHATE
     Route: 065
     Dates: start: 20121002, end: 20121211
  7. GLIMICRON [Concomitant]
     Active Substance: GLICLAZIDE
     Route: 065
     Dates: start: 20130416, end: 20140714
  8. LASIX [Concomitant]
     Active Substance: FUROSEMIDE
     Route: 065
     Dates: start: 20140819
  9. LUCENTIS [Suspect]
     Active Substance: RANIBIZUMAB
     Dosage: (2.3MG/0.23ML) LEFT EYE
     Route: 050
     Dates: start: 20140708
  10. REZALTAS [Concomitant]
     Active Substance: AZELNIDIPINE\OLMESARTAN MEDOXOMIL
     Route: 065
     Dates: start: 20140318
  11. LUCENTIS [Suspect]
     Active Substance: RANIBIZUMAB
     Dosage: (2.3MG/0.23ML) IN BOTH EYES
     Route: 050
     Dates: start: 201407
  12. LASIX [Concomitant]
     Active Substance: FUROSEMIDE
     Route: 065
     Dates: start: 20140715
  13. NESINA [Concomitant]
     Active Substance: ALOGLIPTIN BENZOATE
     Route: 065
     Dates: start: 20121113
  14. LASIX [Concomitant]
     Active Substance: FUROSEMIDE
     Route: 065
     Dates: start: 20140422

REACTIONS (27)
  - Blood bilirubin increased [Unknown]
  - Blood creatine phosphokinase MB increased [Unknown]
  - Oedema peripheral [Unknown]
  - Blood lactate dehydrogenase increased [Unknown]
  - Red blood cell count increased [Unknown]
  - Diabetic nephropathy [Unknown]
  - Renal impairment [Unknown]
  - Aspartate aminotransferase increased [Unknown]
  - Blood creatine phosphokinase increased [Unknown]
  - Blood creatinine increased [Unknown]
  - Brain natriuretic peptide increased [Unknown]
  - Cardiac arrest [Unknown]
  - Generalised oedema [Fatal]
  - Acute myocardial infarction [Fatal]
  - Sepsis [Fatal]
  - Concomitant disease aggravated [Fatal]
  - Alanine aminotransferase increased [Unknown]
  - Blood glucose increased [Unknown]
  - Anaemia [Unknown]
  - Haemoglobin decreased [Unknown]
  - Platelet count decreased [Unknown]
  - Blood alkaline phosphatase increased [Unknown]
  - Blood urea increased [Unknown]
  - Haematocrit decreased [Unknown]
  - Inappropriate schedule of drug administration [Unknown]
  - Disseminated intravascular coagulation [Unknown]
  - Nephrogenic anaemia [Unknown]

NARRATIVE: CASE EVENT DATE: 201409
